FAERS Safety Report 15712479 (Version 3)
Quarter: 2019Q1

REPORT INFORMATION
  Report Type: Spontaneous
  Country: US (occurrence: US)
  Receive Date: 20181212
  Receipt Date: 20190323
  Transmission Date: 20190417
  Serious: No
  Sender: FDA-Public Use
  Company Number: US-BIOGEN-2018BI00670498

PATIENT
  Sex: Male

DRUGS (4)
  1. TECFIDERA [Suspect]
     Active Substance: DIMETHYL FUMARATE
     Dosage: STARTING DOSE
     Route: 050
     Dates: start: 20181220
  2. TECFIDERA [Suspect]
     Active Substance: DIMETHYL FUMARATE
     Dosage: MAINTENANCE DOSE
     Route: 050
     Dates: start: 20130924, end: 20131017
  3. TECFIDERA [Suspect]
     Active Substance: DIMETHYL FUMARATE
     Indication: MULTIPLE SCLEROSIS
     Dosage: STARTING DOSE
     Route: 050
     Dates: start: 20130917, end: 20130923
  4. TECFIDERA [Suspect]
     Active Substance: DIMETHYL FUMARATE
     Route: 050
     Dates: start: 20140204, end: 20160101

REACTIONS (4)
  - Hepatic enzyme increased [Recovered/Resolved]
  - Hepatic enzyme decreased [Unknown]
  - Blood count abnormal [Recovered/Resolved]
  - Lymphocyte count decreased [Unknown]

NARRATIVE: CASE EVENT DATE: 2012
